FAERS Safety Report 25258916 (Version 1)
Quarter: 2025Q2

REPORT INFORMATION
  Report Type: Report from Study
  Country: KR (occurrence: KR)
  Receive Date: 20250501
  Receipt Date: 20250501
  Transmission Date: 20250716
  Serious: Yes (Hospitalization)
  Sender: TAKEDA
  Company Number: KR-TAKEDA-2025TUS041426

PATIENT
  Age: 24 Year
  Sex: Male
  Weight: 63.5 kg

DRUGS (13)
  1. VEDOLIZUMAB [Suspect]
     Active Substance: VEDOLIZUMAB
     Indication: Crohn^s disease
  2. Bearoban [Concomitant]
     Dosage: 10 GRAM, QD
     Route: 061
     Dates: start: 20220708
  3. PREDNICARBATE [Concomitant]
     Active Substance: PREDNICARBATE
     Dosage: 20 GRAM, QD
     Route: 061
     Dates: start: 20220708
  4. LANSOPRAZOLE [Concomitant]
     Active Substance: LANSOPRAZOLE
     Dosage: 15 MILLIGRAM, QD
     Dates: start: 20220808
  5. URSODIOL [Concomitant]
     Active Substance: URSODIOL
     Dosage: 200 MILLIGRAM, TID
     Dates: start: 20230808
  6. EPERISONE [Concomitant]
     Active Substance: EPERISONE
     Dosage: 50 MILLIGRAM, TID
     Dates: start: 20230808
  7. Synflex [Concomitant]
     Dosage: 500 MILLIGRAM, BID
     Dates: start: 20230808
  8. FOLIC ACID [Concomitant]
     Active Substance: FOLIC ACID
     Dosage: 1 MILLIGRAM, TID
     Dates: start: 20230808
  9. Feroba you sr [Concomitant]
     Dosage: 512 MILLIGRAM, QD
     Dates: start: 20230808
  10. Furix [Concomitant]
     Dosage: 40 MILLIGRAM, QD
     Dates: start: 20230808
  11. Cavir [Concomitant]
     Dosage: 500 MILLIGRAM, QD
     Dates: start: 20230808
  12. PENTASA [Concomitant]
     Active Substance: MESALAMINE
     Dosage: 200 MILLIGRAM, BID
     Dates: start: 20220708
  13. AZATHIOPRINE [Concomitant]
     Active Substance: AZATHIOPRINE
     Dosage: 50 MILLIGRAM, BID
     Dates: start: 20220708

REACTIONS (1)
  - Abdominal pain [Recovered/Resolved]

NARRATIVE: CASE EVENT DATE: 20220706
